FAERS Safety Report 12001388 (Version 3)
Quarter: 2016Q1

REPORT INFORMATION
  Report Type: Report from Study
  Country: US (occurrence: US)
  Receive Date: 20160204
  Receipt Date: 20160330
  Transmission Date: 20160526
  Serious: Yes (Hospitalization, Other)
  Sender: FDA-Public Use
  Company Number: US-GILEAD-2016-0196225

PATIENT
  Age: 68 Year
  Sex: Female

DRUGS (19)
  1. AMIODARONE [Concomitant]
     Active Substance: AMIODARONE
  2. VITAMIN C [Concomitant]
     Active Substance: ASCORBIC ACID
  3. POTASSIUM [Concomitant]
     Active Substance: POTASSIUM
  4. MULTIVITAMIN                       /07504101/ [Concomitant]
     Active Substance: VITAMINS
  5. ASPIRIN                            /00002701/ [Concomitant]
     Active Substance: ASPIRIN
  6. ALDACTAZIDE [Concomitant]
     Active Substance: HYDROCHLOROTHIAZIDE\SPIRONOLACTONE
  7. FUROSEMIDE. [Concomitant]
     Active Substance: FUROSEMIDE
  8. INDERAL [Concomitant]
     Active Substance: PROPRANOLOL HYDROCHLORIDE
  9. SPIRONOLACTONE. [Concomitant]
     Active Substance: SPIRONOLACTONE
  10. PROBIOTIC                          /06395501/ [Concomitant]
     Active Substance: BIFIDOBACTERIUM ANIMALIS SUBSP. LACTIS
  11. AMBRISENTAN [Suspect]
     Active Substance: AMBRISENTAN
     Indication: PULMONARY ARTERIAL HYPERTENSION
     Dosage: 10 MG, QD
     Route: 065
     Dates: start: 20151015
  12. LORAZEPAM. [Concomitant]
     Active Substance: LORAZEPAM
  13. DIGOXIN. [Concomitant]
     Active Substance: DIGOXIN
  14. PREVACID [Concomitant]
     Active Substance: LANSOPRAZOLE
  15. OXYGEN. [Concomitant]
     Active Substance: OXYGEN
  16. LISINOPRIL. [Concomitant]
     Active Substance: LISINOPRIL
  17. REMODULIN [Suspect]
     Active Substance: TREPROSTINIL
     Indication: PRODUCT USED FOR UNKNOWN INDICATION
     Route: 065
  18. NEXIUM [Concomitant]
     Active Substance: ESOMEPRAZOLE MAGNESIUM
  19. HYDROCHLOROTHIAZIDE. [Concomitant]
     Active Substance: HYDROCHLOROTHIAZIDE

REACTIONS (7)
  - Cardiac failure congestive [Recovered/Resolved]
  - Asthenia [Recovering/Resolving]
  - Oxygen consumption increased [Not Recovered/Not Resolved]
  - Dyspnoea [Recovering/Resolving]
  - Fluid retention [Recovering/Resolving]
  - Dyspnoea [Not Recovered/Not Resolved]
  - Fluid retention [Not Recovered/Not Resolved]

NARRATIVE: CASE EVENT DATE: 20160220
